FAERS Safety Report 4749557-1 (Version None)
Quarter: 2005Q3

REPORT INFORMATION
  Report Type: 
  Country: None (occurrence: None)
  Receive Date: 20050822
  Receipt Date: 20050812
  Transmission Date: 20060218
  Serious: Yes (Other)
  Sender: FDA-Public Use
  Company Number: 2003-0819

PATIENT
  Sex: Male

DRUGS (4)
  1. COMBIVIR [Suspect]
     Indication: HIV INFECTION
     Dosage: 450MG TWICE PER DAY
     Dates: start: 20030618, end: 20030723
  2. VIRAMUNE [Suspect]
     Indication: HIV INFECTION
     Dosage: 200MG TWICE PER DAY
     Dates: start: 20030618, end: 20030723
  3. IRON [Concomitant]
  4. PRENATAL VITAMINS [Concomitant]

REACTIONS (8)
  - BIRTH TRAUMA [None]
  - CAESAREAN SECTION [None]
  - DRUG EXPOSURE DURING PREGNANCY [None]
  - JAUNDICE [None]
  - JAUNDICE NEONATAL [None]
  - PREMATURE BABY [None]
  - RESPIRATORY DEPRESSION [None]
  - SKIN LACERATION [None]
